FAERS Safety Report 6339374-3 (Version None)
Quarter: 2009Q3

REPORT INFORMATION
  Report Type: 
  Country: None (occurrence: None)
  Receive Date: 20090903
  Receipt Date: 20090824
  Transmission Date: 20100115
  Serious: Yes (Hospitalization, Other)
  Sender: FDA-Public Use
  Company Number: US-ELI_LILLY_AND_COMPANY-US200905005384

PATIENT
  Sex: Male
  Weight: 104.31 kg

DRUGS (17)
  1. BYETTA [Suspect]
     Indication: TYPE 2 DIABETES MELLITUS
     Dosage: 5 UG, 2/D
     Route: 058
     Dates: start: 20060101
  2. BYETTA [Suspect]
     Dosage: 10 UG, 2/D
     Route: 058
     Dates: start: 20060101
  3. COUMADIN [Concomitant]
     Dosage: 6 MG, DAILY (1/D)
  4. POTASSION [Concomitant]
     Dosage: UNK, 2/D
  5. HYDRALAZINE HCL [Concomitant]
     Dosage: 50 MG, 2/D
  6. ZOCOR [Concomitant]
     Dosage: 80 MG, DAILY (1/D)
  7. ALLOPURINOL [Concomitant]
     Dosage: 100 MG, DAILY (1/D)
  8. TIAZAC                             /00489702/ [Concomitant]
     Dosage: 360 MG, DAILY (1/D)
  9. TEMAZEPAM [Concomitant]
     Dosage: 30 MEQ, AS NEEDED
  10. TESTOSTERONE [Concomitant]
     Dosage: UNK, DAILY (1/D)
     Route: 061
  11. ZAROXOLYN [Concomitant]
     Dosage: 5 MG, DAILY (1/D)
  12. ASCORBIC ACID [Concomitant]
     Dosage: 500 MG, DAILY (1/D)
  13. MAGNESIUM OXIDE [Concomitant]
     Dosage: 400 MG, DAILY (1/D)
  14. FISH OIL [Concomitant]
     Dosage: 1000 MG, DAILY (1/D)
  15. VITAMIN B COMPLEX CAP [Concomitant]
     Dosage: UNK, DAILY (1/D)
  16. OXYGEN [Concomitant]
     Dosage: 3 LITER, EACH EVENING
  17. TYLENOL                                 /SCH/ [Concomitant]
     Dosage: UNK, AS NEEDED

REACTIONS (22)
  - ABNORMAL DREAMS [None]
  - ATRIAL FIBRILLATION [None]
  - ATRIAL FLUTTER [None]
  - ATRIOVENTRICULAR BLOCK FIRST DEGREE [None]
  - BLOOD GLUCOSE DECREASED [None]
  - CYSTITIS [None]
  - DRUG INEFFECTIVE [None]
  - FEELING ABNORMAL [None]
  - GENERALISED OEDEMA [None]
  - HALLUCINATION [None]
  - INCISION SITE HAEMORRHAGE [None]
  - INCISION SITE INFECTION [None]
  - OFF LABEL USE [None]
  - OSTEOARTHRITIS [None]
  - PRESYNCOPE [None]
  - RENAL FAILURE CHRONIC [None]
  - TOBACCO USER [None]
  - TOTAL LUNG CAPACITY DECREASED [None]
  - VISUAL BRIGHTNESS [None]
  - VOLUME BLOOD DECREASED [None]
  - WEIGHT FLUCTUATION [None]
  - WOUND DEHISCENCE [None]
